FAERS Safety Report 9693904 (Version 2)
Quarter: 2013Q4

REPORT INFORMATION
  Report Type: Spontaneous
  Country: DE (occurrence: DE)
  Receive Date: 20131118
  Receipt Date: 20131203
  Transmission Date: 20140711
  Serious: Yes (Other)
  Sender: FDA-Public Use
  Company Number: DE-PFIZER INC-2013327157

PATIENT
  Age: 86 Year
  Sex: Female
  Weight: 80.6 kg

DRUGS (18)
  1. RAMIPRIL [Suspect]
     Dosage: 5 MG, DAILY
     Route: 048
     Dates: start: 2007
  2. MIRTAZAPINE [Suspect]
     Dosage: 30 MG, DAILY
     Route: 048
     Dates: start: 200706, end: 2007
  3. MIRTAZAPINE [Suspect]
     Dosage: 45 MG, DAILY
     Route: 048
     Dates: start: 2007
  4. SEROQUEL PROLONG [Suspect]
     Dosage: 50 MG, DAILY
     Route: 048
     Dates: start: 20130702, end: 20130712
  5. JENASPIRON [Suspect]
     Dosage: 25 MG, DAILY
     Route: 048
     Dates: start: 2011, end: 20130717
  6. JENASPIRON [Suspect]
     Dosage: 25 MG, DAILY
     Route: 048
     Dates: start: 20130719
  7. HCT HEXAL [Suspect]
     Dosage: 25 MG, DAILY
     Route: 048
     Dates: start: 2007
  8. PLAVIX [Concomitant]
     Dosage: UNK
     Dates: start: 2011
  9. ARICEPT [Concomitant]
     Dosage: UNK
     Dates: start: 200706
  10. LYRICA [Concomitant]
     Dosage: UNK
     Dates: start: 201104
  11. ZOLPIDEM [Concomitant]
     Dosage: UNK
     Dates: start: 2013
  12. METFORMIN [Concomitant]
     Dosage: UNK
     Dates: start: 2011
  13. CARMEN [Concomitant]
     Dosage: UNK
     Dates: start: 2007
  14. BISOPROLOL [Concomitant]
     Dosage: UNK
     Dates: start: 2007
  15. DIGITOXIN [Concomitant]
     Dosage: UNK
     Dates: start: 2007, end: 20130714
  16. DIGITOXIN [Concomitant]
     Dosage: UNK
     Dates: start: 2013
  17. ALLOPURINOL [Concomitant]
     Dosage: UNK
     Dates: start: 2011
  18. MAGNESIUM [Concomitant]
     Dosage: UNK
     Dates: start: 20130711, end: 20130712

REACTIONS (4)
  - Hyponatraemia [Recovering/Resolving]
  - Fatigue [Recovering/Resolving]
  - Nausea [Recovering/Resolving]
  - Headache [Recovering/Resolving]
